FAERS Safety Report 4513337-2 (Version None)
Quarter: 2004Q4

REPORT INFORMATION
  Report Type: 
  Country: None (occurrence: None)
  Receive Date: 20041130
  Receipt Date: 20040812
  Transmission Date: 20050328
  Serious: No
  Sender: FDA-Public Use
  Company Number: US-BRISTOL-MYERS SQUIBB COMPANY-12669818

PATIENT
  Age: 56 Year
  Sex: Male
  Weight: 119 kg

DRUGS (12)
  1. ERBITUX [Suspect]
     Indication: COLON CANCER METASTATIC
     Route: 042
     Dates: start: 20040727, end: 20040727
  2. CAMPTOSAR [Concomitant]
     Route: 042
  3. BENADRYL [Concomitant]
     Indication: PREMEDICATION
     Route: 042
  4. ATROPINE [Concomitant]
     Indication: PREMEDICATION
     Route: 042
  5. TAGAMET [Concomitant]
     Indication: PREMEDICATION
     Route: 042
  6. DECADRON [Concomitant]
     Indication: PREMEDICATION
     Route: 042
  7. ALOXI [Concomitant]
     Indication: PREMEDICATION
     Route: 042
  8. PREVACID [Concomitant]
  9. PRILOSEC [Concomitant]
  10. GLYBURIDE [Concomitant]
  11. CELEBREX [Concomitant]
  12. ACTOS [Concomitant]

REACTIONS (2)
  - DERMATITIS ACNEIFORM [None]
  - FLUSHING [None]
